FAERS Safety Report 5392758-2 (Version None)
Quarter: 2007Q3

REPORT INFORMATION
  Report Type: 
  Country: None (occurrence: None)
  Receive Date: 20070718
  Receipt Date: 20070702
  Transmission Date: 20080115
  Serious: Yes (Life-Threatening)
  Sender: FDA-Public Use
  Company Number: 2007US001584

PATIENT
  Age: 64 Year
  Sex: Female

DRUGS (12)
  1. AMBISOME [Suspect]
     Indication: FEBRILE NEUTROPENIA
     Dosage: SEE IMAGE
     Route: 042
     Dates: start: 20070626, end: 20070626
  2. AMBISOME [Suspect]
     Indication: FEBRILE NEUTROPENIA
     Dosage: SEE IMAGE
     Route: 042
     Dates: start: 20070627, end: 20070627
  3. HEPARIN [Concomitant]
  4. OMEPRAZOLE [Concomitant]
  5. CLINOMEL (GLUCOSE, ELECTROLYTES NOS, AMINO ACIDS NOS, LIPIDS NOS, CALC [Concomitant]
  6. PHOCYTAN (GLUCOSE 1-PHOSPHATE DISODIUM) [Concomitant]
  7. CEFTAZIDIME SODIUM [Concomitant]
  8. MORPHINE SULFATE [Concomitant]
  9. NEUPOGEN [Concomitant]
  10. ZOVIRAX [Concomitant]
  11. POTASSIUM CHLORIDE [Concomitant]
  12. VANCOMYCIN [Concomitant]

REACTIONS (7)
  - ABDOMINAL PAIN UPPER [None]
  - ANGIOEDEMA [None]
  - CHEST DISCOMFORT [None]
  - FACE OEDEMA [None]
  - MALAISE [None]
  - ORAL DISCOMFORT [None]
  - TONGUE OEDEMA [None]
